FAERS Safety Report 12059216 (Version 1)
Quarter: 2016Q1

REPORT INFORMATION
  Report Type: Spontaneous
  Country: US (occurrence: US)
  Receive Date: 20160210
  Receipt Date: 20160210
  Transmission Date: 20160526
  Serious: No
  Sender: FDA-Public Use
  Company Number: US-DEXPHARM-20152455

PATIENT
  Sex: Female

DRUGS (1)
  1. DICLOFENAC SODIUM EXTENDED RELEASE TABLETS [Suspect]
     Active Substance: DICLOFENAC SODIUM
     Indication: PAIN

REACTIONS (2)
  - Drug ineffective [Unknown]
  - Product substitution issue [None]
